FAERS Safety Report 8063390-7 (Version None)
Quarter: 2012Q1

REPORT INFORMATION
  Report Type: 
  Country: None (occurrence: None)
  Receive Date: 20120117
  Receipt Date: 20120103
  Transmission Date: 20120608
  Serious: Yes (Death)
  Sender: FDA-Public Use
  Company Number: B0773389A

PATIENT
  Age: 55 Year
  Sex: Female

DRUGS (12)
  1. NAPROXEN [Suspect]
  2. EZETIMIBE/SIMVASTATIN [Suspect]
  3. TAGAMET HB [Suspect]
  4. GABAPENTIN [Suspect]
  5. MORPHINE [Suspect]
  6. CYCLOBENZAPRINE HCL [Suspect]
  7. ALPRAZOLAM [Suspect]
  8. PRAVASTATIN [Suspect]
  9. COCAINE (FORMULATION UNKNOWN) (GENERIC) (COCAINE) [Suspect]
  10. OXYCODONE HCL [Suspect]
  11. HYDROCODONE BITARTRATE [Suspect]
  12. MONTELUKAST SODIUM [Suspect]

REACTIONS (1)
  - INTENTIONAL DRUG MISUSE [None]
